FAERS Safety Report 5155828-X (Version None)
Quarter: 2006Q4

REPORT INFORMATION
  Report Type: 
  Country: None (occurrence: None)
  Receive Date: 20061120
  Receipt Date: 20061120
  Transmission Date: 20070319
  Serious: Yes (Hospitalization, Other)
  Sender: FDA-Public Use
  Company Number: None

PATIENT
  Age: 70 Year
  Sex: Female

DRUGS (11)
  1. TENOFOVIR [Suspect]
     Indication: HIV INFECTION
     Dosage: 300 MG  OD  PO
     Route: 048
  2. MEPRON [Concomitant]
  3. EPOGEN [Concomitant]
  4. LEVETRECET [Concomitant]
  5. LOPRESSOR [Concomitant]
  6. REMERON [Concomitant]
  7. ACCUPRIL [Concomitant]
  8. LOXAPIN [Concomitant]
  9. LASIX [Concomitant]
  10. FOSAMAX [Concomitant]
  11. MARINOL [Concomitant]

REACTIONS (1)
  - RENAL FAILURE ACUTE [None]
